FAERS Safety Report 8015431-0 (Version None)
Quarter: 2011Q4

REPORT INFORMATION
  Report Type: 
  Country: None (occurrence: None)
  Receive Date: 20111230
  Receipt Date: 20111219
  Transmission Date: 20120403
  Serious: Yes (Other)
  Sender: FDA-Public Use
  Company Number: JP-BRISTOL-MYERS SQUIBB COMPANY-16301012

PATIENT
  Age: 27 Year
  Sex: Female

DRUGS (1)
  1. ARIPIPRAZOLE [Suspect]

REACTIONS (2)
  - AGGRESSION [None]
  - IMPULSIVE BEHAVIOUR [None]
